FAERS Safety Report 5601862-2 (Version None)
Quarter: 2008Q1

REPORT INFORMATION
  Report Type: 
  Country: None (occurrence: None)
  Receive Date: 20080124
  Receipt Date: 20080115
  Transmission Date: 20080703
  Serious: Yes (Hospitalization, Other)
  Sender: FDA-Public Use
  Company Number: US-PFIZER INC-2007107822

PATIENT
  Sex: Male
  Weight: 85.454 kg

DRUGS (29)
  1. EXUBERA [Suspect]
     Dosage: TEXT:3 MG
  2. PROPRANOLOL [Concomitant]
  3. PROPRANOLOL [Concomitant]
  4. ENULOSE [Concomitant]
  5. ENULOSE [Concomitant]
  6. LEXAPRO [Concomitant]
  7. LEXAPRO [Concomitant]
  8. NEOMYCIN [Concomitant]
  9. NEOMYCIN [Concomitant]
  10. SPIRONOLACTONE [Concomitant]
  11. SPIRONOLACTONE [Concomitant]
  12. FUROSEMIDE [Concomitant]
  13. FUROSEMIDE [Concomitant]
  14. VITAMIN D [Concomitant]
  15. VITAMIN D [Concomitant]
  16. MORPHINE SULFATE [Concomitant]
  17. MORPHINE SULFATE [Concomitant]
  18. HYDROMORPHONE HCL [Concomitant]
  19. HYDROMORPHONE HCL [Concomitant]
  20. TRIAZOLAM [Concomitant]
  21. TRIAZOLAM [Concomitant]
  22. GLIPIZIDE [Concomitant]
  23. GLIPIZIDE [Concomitant]
  24. NEXIUM [Concomitant]
  25. NEXIUM [Concomitant]
  26. METFORMIN HCL [Concomitant]
  27. METFORMIN HCL [Concomitant]
  28. WELCHOL [Concomitant]
  29. WELCHOL [Concomitant]

REACTIONS (3)
  - BLOOD GLUCOSE DECREASED [None]
  - LOSS OF CONSCIOUSNESS [None]
  - UNRESPONSIVE TO STIMULI [None]
